FAERS Safety Report 22321153 (Version 1)
Quarter: 2023Q2

REPORT INFORMATION
  Report Type: Spontaneous
  Country: US (occurrence: None)
  Receive Date: 20230512
  Receipt Date: 20230512
  Transmission Date: 20230722
  Serious: No
  Sender: FDA-Public Use
  Company Number: None

PATIENT
  Age: 36 Year
  Sex: Female
  Weight: 61.23 kg

DRUGS (6)
  1. LILETTA [Suspect]
     Active Substance: LEVONORGESTREL
  2. CALCIUM [Concomitant]
     Active Substance: CALCIUM
  3. VITAMINS [Concomitant]
     Active Substance: VITAMINS
  4. FOLIC ACID [Concomitant]
     Active Substance: FOLIC ACID
  5. PROBIOTICS NOS [Concomitant]
     Active Substance: PROBIOTICS NOS
  6. FLONASE [Concomitant]
     Active Substance: FLUTICASONE PROPIONATE

REACTIONS (4)
  - Dizziness [None]
  - Motion sickness [None]
  - Nausea [None]
  - Complication of device removal [None]

NARRATIVE: CASE EVENT DATE: 20230421
